FAERS Safety Report 11763452 (Version 1)
Quarter: 2015Q4

REPORT INFORMATION
  Report Type: Spontaneous
  Country: US (occurrence: US)
  Receive Date: 20151120
  Receipt Date: 20151120
  Transmission Date: 20160304
  Serious: No
  Sender: FDA-Public Use
  Company Number: US-ELI_LILLY_AND_COMPANY-US201303006715

PATIENT
  Sex: Female
  Weight: 36 kg

DRUGS (2)
  1. FORTEO [Suspect]
     Active Substance: TERIPARATIDE
     Indication: OSTEOPOROSIS
     Dosage: UNK
  2. CALCIUM [Concomitant]
     Active Substance: CALCIUM
     Dosage: 2 DF, QD

REACTIONS (5)
  - Musculoskeletal discomfort [Unknown]
  - Fear [Not Recovered/Not Resolved]
  - Neck pain [Unknown]
  - Pain [Unknown]
  - Visual impairment [Unknown]
